FAERS Safety Report 4517204-X (Version None)
Quarter: 2004Q4

REPORT INFORMATION
  Report Type: 
  Country: None (occurrence: None)
  Receive Date: 20041202
  Receipt Date: 20041006
  Transmission Date: 20050328
  Serious: Yes (Life-Threatening, Hospitalization, Disabling, Other)
  Sender: FDA-Public Use
  Company Number: US-MERCK-0410USA01010

PATIENT
  Age: 58 Year
  Sex: Male
  Weight: 99 kg

DRUGS (5)
  1. VIOXX [Suspect]
     Indication: OSTEOARTHRITIS
     Route: 048
     Dates: start: 20030924, end: 20041001
  2. VIOXX [Suspect]
     Indication: PAIN IN EXTREMITY
     Route: 048
     Dates: start: 20030924, end: 20041001
  3. ELAVIL [Concomitant]
     Indication: NEUROPATHIC PAIN
     Route: 048
     Dates: start: 20040112, end: 20040114
  4. NEURONTIN [Concomitant]
     Indication: NEUROPATHIC PAIN
     Route: 048
     Dates: start: 20040114, end: 20040126
  5. SOMA [Concomitant]
     Indication: NECK PAIN
     Route: 048
     Dates: start: 20040225

REACTIONS (1)
  - MYOCARDIAL INFARCTION [None]
